FAERS Safety Report 9098540 (Version 1)
Quarter: 2013Q1

REPORT INFORMATION
  Report Type: Spontaneous
  Country: TR (occurrence: TR)
  Receive Date: 20130213
  Receipt Date: 20130213
  Transmission Date: 20140127
  Serious: Yes (Hospitalization)
  Sender: FDA-Public Use
  Company Number: TR-ABBOTT-13P-161-1040662-00

PATIENT
  Age: 38 Year
  Sex: Male

DRUGS (4)
  1. HUMIRA [Suspect]
     Indication: ANKYLOSING SPONDYLITIS
     Route: 058
     Dates: start: 20120921
  2. VITAMIN B COMPLEX [Concomitant]
     Indication: VITAMIN B COMPLEX DEFICIENCY
     Dosage: 1X1
     Route: 048
  3. COLCHICINE [Concomitant]
     Indication: FAMILIAL MEDITERRANEAN FEVER
     Dosage: 3X1
     Route: 048
  4. ISONIAZIDE [Concomitant]
     Indication: ANTIBIOTIC PROPHYLAXIS
     Dosage: 1X1
     Route: 048
     Dates: start: 20121001

REACTIONS (2)
  - Inguinal hernia [Recovering/Resolving]
  - Bronchitis [Recovering/Resolving]
